FAERS Safety Report 4573974-6 (Version None)
Quarter: 2005Q1

REPORT INFORMATION
  Report Type: 
  Country: None (occurrence: None)
  Receive Date: 20050204
  Receipt Date: 20050131
  Transmission Date: 20050727
  Serious: Yes (Hospitalization)
  Sender: FDA-Public Use
  Company Number: 2005UW01698

PATIENT
  Age: 77 Year
  Sex: Male
  Weight: 81.6475 kg

DRUGS (6)
  1. IRESSA [Suspect]
     Indication: PROSTATE CANCER
     Dosage: 1 DF DAILY PO
     Route: 048
     Dates: start: 20041230
  2. ETOPOSIDE [Suspect]
     Indication: PROSTATE CANCER
     Dosage: 2 DF DAILY
     Dates: start: 20041230
  3. COUMADIN [Concomitant]
  4. SOTALOL HCL [Concomitant]
  5. PROSCAR [Concomitant]
  6. PAROXETINE HCL [Concomitant]

REACTIONS (3)
  - ABDOMINAL PAIN LOWER [None]
  - CALCULUS URETERIC [None]
  - FLANK PAIN [None]
